FAERS Safety Report 23041059 (Version 1)
Quarter: 2023Q4

REPORT INFORMATION
  Report Type: Other
  Country: CN (occurrence: None)
  Receive Date: 20231007
  Receipt Date: 20231007
  Transmission Date: 20240110
  Serious: Yes (Other)
  Sender: FDA-Public Use
  Company Number: CN-ROCHE-3433598

PATIENT

DRUGS (6)
  1. BEVACIZUMAB [Suspect]
     Active Substance: BEVACIZUMAB
     Indication: Colorectal cancer metastatic
     Dosage: ON DAY 1 AND REPEATED EVERY 2 WEEKS
     Route: 042
  2. CAPECITABINE [Suspect]
     Active Substance: CAPECITABINE
     Indication: Colorectal cancer metastatic
     Dosage: DAYS 1~7, REPEATED EVERY 2 WEEKS.
     Route: 048
  3. OXALIPLATIN [Suspect]
     Active Substance: OXALIPLATIN
     Indication: Colorectal cancer metastatic
     Dosage: FOR 2 HOURS, DAY 1
     Route: 041
  4. LEUCOVORIN CALCIUM [Suspect]
     Active Substance: LEUCOVORIN CALCIUM
     Indication: Colorectal cancer metastatic
     Dosage: FOR 2 HOURS, DAY 1.
     Route: 041
  5. FLUOROURACIL [Suspect]
     Active Substance: FLUOROURACIL
     Indication: Colorectal cancer metastatic
     Dosage: 400 MG/M2, INTRAVENOUS BOLUS, DAY 1, THEN A TOTAL OF 2400 MG/M2 CONTINUOUS PUMPING FOR 46 ~ 48 HOURS
     Route: 040
  6. IRINOTECAN [Suspect]
     Active Substance: IRINOTECAN
     Indication: Colorectal cancer metastatic
     Dosage: FOR FOLFOX6 REGIMEN: FOR 90 MINUTES, DAY 1.?FOR FOLFIRI REGIMEN REPEATED EVERY 2 WEEKS
     Route: 041

REACTIONS (5)
  - Gastrointestinal disorder [Unknown]
  - Hepatic function abnormal [Unknown]
  - Rash [Unknown]
  - Cardiotoxicity [Unknown]
  - Myelosuppression [Unknown]
